FAERS Safety Report 8988100 (Version 1)
Quarter: 2012Q4

REPORT INFORMATION
  Report Type: 
  Country: US (occurrence: US)
  Receive Date: 20121227
  Receipt Date: 20121227
  Transmission Date: 20130627
  Serious: Yes (Hospitalization)
  Sender: FDA-Public Use
  Company Number: US-JNJFOC-20121211205

PATIENT
  Sex: Female

DRUGS (1)
  1. BENADRYL ALLERGY ULTRATAB [Suspect]
     Indication: CYCLIC VOMITING SYNDROME
     Dosage: used only when neccessary when she feels an episode of cyclic vomiting syndrome coming on
     Route: 048
     Dates: start: 20120831

REACTIONS (3)
  - Sedation [Unknown]
  - Condition aggravated [Unknown]
  - Off label use [Unknown]
